FAERS Safety Report 7009430-5 (Version None)
Quarter: 2010Q3

REPORT INFORMATION
  Report Type: 
  Country: None (occurrence: None)
  Receive Date: 20100923
  Receipt Date: 20100920
  Transmission Date: 20110219
  Serious: Yes (Hospitalization, Other)
  Sender: FDA-Public Use
  Company Number: SE-ROXANE LABORATORIES, INC.-2010-RO-01256RO

PATIENT
  Age: 59 Year
  Sex: Female
  Weight: 50 kg

DRUGS (27)
  1. FLUCONAZOLE [Suspect]
     Indication: ORAL CANDIDIASIS
     Dosage: 50 MG
     Dates: start: 20000101, end: 20000101
  2. FLUCONAZOLE [Suspect]
     Dosage: 400 MG
     Dates: start: 20080101, end: 20080101
  3. AZATHIOPRINE [Suspect]
     Indication: BEHCET'S SYNDROME
  4. AZATHIOPRINE [Suspect]
     Dates: start: 20080101
  5. METHOTREXATE [Suspect]
     Indication: BEHCET'S SYNDROME
  6. CYCLOPHOSPHAMIDE [Suspect]
     Indication: BEHCET'S SYNDROME
  7. CALCIUM CARBONATE [Suspect]
     Dates: start: 20080101
  8. CITALOPRAM HYDROBROMIDE [Suspect]
     Dates: start: 20080101
  9. FUROSEMIDE [Suspect]
     Dates: start: 20080101
  10. METHADONE [Suspect]
     Dates: start: 20080101
  11. LOPERAMIDE [Suspect]
     Dates: start: 20080101
  12. PHENYTOIN SODIUM [Suspect]
     Indication: EPILEPSY
     Dosage: 700 MG
  13. CYCLOSPORINE [Suspect]
     Indication: BEHCET'S SYNDROME
  14. SULFASALAZINE [Suspect]
     Indication: BEHCET'S SYNDROME
  15. INFLIXIMAB [Suspect]
     Indication: BEHCET'S SYNDROME
  16. ETANERCEPT [Suspect]
     Indication: BEHCET'S SYNDROME
  17. PREDNISOLONE [Suspect]
     Dates: start: 20080101
  18. ALFACALCIDOL [Suspect]
     Dates: start: 20080101
  19. AMPICILLIN SODIUM [Suspect]
     Dates: start: 20080101
  20. AMOXICILLIN [Suspect]
     Dates: start: 20080101
  21. CLONIDINE [Suspect]
     Dates: start: 20080101
  22. CLONAZEPAM [Suspect]
     Dates: start: 20080101
  23. ZOPICLONE [Suspect]
     Dates: start: 20080101
  24. POTASSIUM [Suspect]
     Dates: start: 20080101
  25. PANTOPRAZOLE [Suspect]
     Dates: start: 20080101
  26. METOCLOPRAMIDE [Suspect]
     Dates: start: 20080101
  27. PROPIOMAZINE [Suspect]
     Dates: start: 20080101

REACTIONS (5)
  - CANDIDIASIS [None]
  - DRUG INEFFECTIVE [None]
  - DRUG INTERACTION [None]
  - DRUG TOXICITY [None]
  - LUNG INFILTRATION [None]
